FAERS Safety Report 5304848-0 (Version None)
Quarter: 2007Q2

REPORT INFORMATION
  Report Type: 
  Country: None (occurrence: None)
  Receive Date: 20070423
  Receipt Date: 20070312
  Transmission Date: 20071010
  Serious: Yes (Other)
  Sender: FDA-Public Use
  Company Number: US-SANOFI-SYNTHELABO-A03200702269

PATIENT
  Sex: Male

DRUGS (6)
  1. AMBIEN [Suspect]
     Indication: INSOMNIA
     Dosage: 6.25 AND 12.5 MG, ONE TABLET AT HS
     Route: 048
     Dates: start: 20051201, end: 20060502
  2. ^COUMIDAN^ [Concomitant]
     Dosage: UNK
     Route: 065
  3. PROPO-N/APAP [Concomitant]
     Dosage: UNK
     Route: 065
  4. NAPROXEN [Concomitant]
     Dosage: UNK
     Route: 065
  5. LYRICA [Concomitant]
     Dosage: UNK
     Route: 065
  6. SKELAXIN [Concomitant]
     Dosage: UNK
     Route: 065

REACTIONS (7)
  - AMNESIA [None]
  - DRUG INEFFECTIVE [None]
  - DYSARTHRIA [None]
  - FALL [None]
  - GAIT DISTURBANCE [None]
  - ROAD TRAFFIC ACCIDENT [None]
  - TREMOR [None]
